FAERS Safety Report 7465169-3 (Version None)
Quarter: 2011Q2

REPORT INFORMATION
  Report Type: 
  Country: None (occurrence: None)
  Receive Date: 20110509
  Receipt Date: 20110429
  Transmission Date: 20111010
  Serious: Yes (Hospitalization, Other)
  Sender: FDA-Public Use
  Company Number: IT-JNJFOC-20110410549

PATIENT
  Sex: Male

DRUGS (10)
  1. PHENOBARBITAL TAB [Suspect]
     Indication: METASTASIS
     Route: 065
  2. ASPIRIN [Concomitant]
     Indication: PRODUCT USED FOR UNKNOWN INDICATION
     Route: 065
  3. PHENOBARBITAL TAB [Suspect]
     Route: 065
  4. PANTOPRAZOLE [Concomitant]
     Indication: ILL-DEFINED DISORDER
     Route: 065
  5. COTAREG [Concomitant]
     Indication: PRODUCT USED FOR UNKNOWN INDICATION
     Route: 065
  6. TOPAMAX [Suspect]
     Indication: METASTASIS
     Route: 048
  7. SIMVASTATIN [Concomitant]
     Indication: ILL-DEFINED DISORDER
     Route: 065
  8. PAXABEL [Concomitant]
     Indication: PRODUCT USED FOR UNKNOWN INDICATION
     Route: 048
  9. TICLOPIDINE HCL [Concomitant]
     Indication: ILL-DEFINED DISORDER
     Route: 065
  10. LOBIVON [Concomitant]
     Indication: PRODUCT USED FOR UNKNOWN INDICATION
     Route: 065

REACTIONS (4)
  - GENITAL LESION [None]
  - TOXIC EPIDERMAL NECROLYSIS [None]
  - ORAL DISORDER [None]
  - RASH [None]
